FAERS Safety Report 9109352 (Version 1)
Quarter: 2013Q1

REPORT INFORMATION
  Report Type: Spontaneous
  Country: US (occurrence: US)
  Receive Date: 20130222
  Receipt Date: 20130222
  Transmission Date: 20140127
  Serious: Yes (Other)
  Sender: FDA-Public Use
  Company Number: US-BAYER-2013-019458

PATIENT
  Sex: Female

DRUGS (1)
  1. MIRENA [Suspect]
     Dosage: 20 MCG/24HR, CONT
     Route: 015

REACTIONS (41)
  - Convulsion [None]
  - Feeling of despair [None]
  - Dyspnoea [None]
  - Palpitations [None]
  - Dysarthria [None]
  - Hypoaesthesia [None]
  - Depression [None]
  - Crying [None]
  - Depressed mood [None]
  - Anger [None]
  - Premenstrual dysphoric disorder [None]
  - Muscle atrophy [None]
  - Feeling abnormal [None]
  - Pain [None]
  - Weight abnormal [None]
  - Memory impairment [None]
  - Nausea [None]
  - Throat irritation [None]
  - Dysphagia [None]
  - Retching [None]
  - Rash [None]
  - Rosacea [None]
  - Fatigue [None]
  - Oedema peripheral [None]
  - Breast calcifications [None]
  - Breast swelling [None]
  - Galactorrhoea [None]
  - Vulvovaginal pain [None]
  - Coital bleeding [None]
  - Alopecia [None]
  - Vitamin B12 deficiency [None]
  - Stress [None]
  - Abdominal distension [None]
  - Eye irritation [None]
  - Eye pruritus [None]
  - Vision blurred [None]
  - Dyspepsia [None]
  - Night sweats [None]
  - Hot flush [None]
  - Weight decreased [None]
  - Muscle spasms [None]
